FAERS Safety Report 8125365-9 (Version None)
Quarter: 2012Q1

REPORT INFORMATION
  Report Type: 
  Country: None (occurrence: None)
  Receive Date: 20120209
  Receipt Date: 20120206
  Transmission Date: 20120608
  Serious: Yes (Life-Threatening)
  Sender: FDA-Public Use
  Company Number: HR-GLAXOSMITHKLINE-B0774006A

PATIENT
  Sex: Male
  Weight: 90 kg

DRUGS (3)
  1. TAMSULOSIN HYDROCHLORIDE [Concomitant]
     Indication: PRODUCT USED FOR UNKNOWN INDICATION
     Dosage: 1TAB PER DAY
     Route: 065
  2. REQUIP [Suspect]
     Indication: PRODUCT USED FOR UNKNOWN INDICATION
     Dosage: 2MG UNKNOWN
     Route: 065
  3. NAKOM [Concomitant]
     Indication: PRODUCT USED FOR UNKNOWN INDICATION
     Dosage: 4TAB PER DAY
     Route: 065

REACTIONS (2)
  - NARCOLEPSY [None]
  - COMA [None]
